FAERS Safety Report 23519235 (Version 1)
Quarter: 2024Q1

REPORT INFORMATION
  Report Type: Spontaneous
  Country: US (occurrence: US)
  Receive Date: 20240213
  Receipt Date: 20240213
  Transmission Date: 20240410
  Serious: No
  Sender: FDA-Public Use
  Company Number: US-SA-2024SA041652

PATIENT
  Age: 58 Year
  Sex: Female

DRUGS (2)
  1. DUPILUMAB [Suspect]
     Active Substance: DUPILUMAB
     Indication: Psoriasis
     Dosage: 600 MG, 1X
     Route: 058
     Dates: start: 20231206, end: 20231206
  2. DUPILUMAB [Suspect]
     Active Substance: DUPILUMAB
     Dosage: 300 MG, QOW
     Route: 058
     Dates: start: 20231220, end: 202401

REACTIONS (7)
  - Drug hypersensitivity [Recovering/Resolving]
  - Urticaria [Recovering/Resolving]
  - Blister [Recovering/Resolving]
  - Pruritus [Recovering/Resolving]
  - Melanocytic naevus [Recovering/Resolving]
  - Skin papilloma [Recovering/Resolving]
  - Product use in unapproved indication [Unknown]

NARRATIVE: CASE EVENT DATE: 20231201
